FAERS Safety Report 8005853-6 (Version None)
Quarter: 2011Q4

REPORT INFORMATION
  Report Type: 
  Country: None (occurrence: None)
  Receive Date: 20111223
  Receipt Date: 20111219
  Transmission Date: 20120403
  Serious: Yes (Death, Other)
  Sender: FDA-Public Use
  Company Number: CL-ASTRAZENECA-2011SE76775

PATIENT
  Age: 50 Year
  Sex: Male

DRUGS (4)
  1. SPIRONOLACTONE [Concomitant]
  2. NEXIUM [Suspect]
     Route: 048
  3. NEXIUM [Suspect]
     Route: 048
     Dates: start: 20101001, end: 20111009
  4. FUROSEMIDE [Concomitant]

REACTIONS (2)
  - HEPATORENAL SYNDROME [None]
  - HEPATIC CIRRHOSIS [None]
